FAERS Safety Report 9706255 (Version 3)
Quarter: 2014Q1

REPORT INFORMATION
  Report Type: Spontaneous
  Country: US (occurrence: US)
  Receive Date: 20131125
  Receipt Date: 20140330
  Transmission Date: 20141002
  Serious: No
  Sender: FDA-Public Use
  Company Number: US-009507513-1311USA009328

PATIENT
  Age: 55 Year
  Sex: Male
  Weight: 75.74 kg

DRUGS (4)
  1. TICE BCG LIVE [Suspect]
     Indication: BLADDER CANCER
     Dosage: UNK
     Route: 043
     Dates: start: 201311
  2. TICE BCG LIVE [Suspect]
     Dosage: UNK
     Route: 043
     Dates: start: 20131108
  3. BACTRIM DS [Concomitant]
     Dosage: UNK, BID
     Route: 048
  4. PRILOSEC [Concomitant]
     Dosage: ONE DAILY
     Route: 048

REACTIONS (5)
  - Adverse reaction [Recovering/Resolving]
  - Dysuria [Recovered/Resolved]
  - Pyrexia [Recovering/Resolving]
  - Haematuria [Recovered/Resolved]
  - Chills [Recovering/Resolving]
